FAERS Safety Report 5418745-3 (Version None)
Quarter: 2007Q3

REPORT INFORMATION
  Report Type: 
  Country: None (occurrence: None)
  Receive Date: 20070817
  Receipt Date: 20070807
  Transmission Date: 20080115
  Serious: Yes (Other)
  Sender: FDA-Public Use
  Company Number: IE-PFIZER INC-2007061722

PATIENT
  Age: 60 Year
  Sex: Male
  Weight: 79.9 kg

DRUGS (5)
  1. LIPITOR [Suspect]
     Indication: CORONARY ARTERY DISEASE
     Route: 048
     Dates: start: 20070326, end: 20070718
  2. ASPIRIN [Concomitant]
     Route: 048
  3. CLOPIDOGREL [Concomitant]
     Route: 048
  4. BISOPROLOL [Concomitant]
     Route: 048
  5. TAMSULOSIN HCL [Concomitant]
     Route: 048

REACTIONS (8)
  - ABDOMINAL DISCOMFORT [None]
  - ACUTE MYOCARDIAL INFARCTION [None]
  - ALANINE AMINOTRANSFERASE INCREASED [None]
  - ALOPECIA [None]
  - BLOOD BILIRUBIN INCREASED [None]
  - DIARRHOEA [None]
  - MUSCLE SPASMS [None]
  - MYALGIA [None]
